FAERS Safety Report 18354995 (Version 1)
Quarter: 2020Q4

REPORT INFORMATION
  Report Type: Spontaneous
  Country: US (occurrence: US)
  Receive Date: 20201007
  Receipt Date: 20201007
  Transmission Date: 20210114
  Serious: Yes (Life-Threatening, Hospitalization, Disabling)
  Sender: FDA-Public Use
  Company Number: None

PATIENT
  Age: 22 Year
  Sex: Female
  Weight: 58.5 kg

DRUGS (1)
  1. KLONOPIN [Suspect]
     Active Substance: CLONAZEPAM
     Indication: ANXIETY
     Dosage: ?          QUANTITY:1 TABLET(S);?
     Route: 048

REACTIONS (11)
  - Therapy interrupted [None]
  - Malaise [None]
  - Therapy change [None]
  - Formication [None]
  - Panic reaction [None]
  - Headache [None]
  - Hallucination [None]
  - Anxiety [None]
  - Incorrect product administration duration [None]
  - Neuralgia [None]
  - Withdrawal syndrome [None]
